FAERS Safety Report 9969831 (Version 2)
Quarter: 2014Q1

REPORT INFORMATION
  Report Type: Spontaneous
  Country: SI (occurrence: SI)
  Receive Date: 20140306
  Receipt Date: 20140320
  Transmission Date: 20141002
  Serious: Yes (Death, Other)
  Sender: FDA-Public Use
  Company Number: SI-SA-2014SA027781

PATIENT
  Age: 57 Year
  Sex: Male
  Weight: 59 kg

DRUGS (1)
  1. FABRAZYME [Suspect]
     Indication: FABRY^S DISEASE
     Route: 042
     Dates: start: 20030909, end: 20140128

REACTIONS (4)
  - Septic shock [Fatal]
  - Aortic valve stenosis [Unknown]
  - Pneumonia [Unknown]
  - Renal failure acute [Unknown]
